FAERS Safety Report 10922385 (Version 2)
Quarter: 2015Q1

REPORT INFORMATION
  Report Type: Spontaneous
  Country: FR (occurrence: FR)
  Receive Date: 20150317
  Receipt Date: 20150318
  Transmission Date: 20150721
  Serious: Yes (Hospitalization, Other)
  Sender: FDA-Public Use
  Company Number: FR-PFIZER INC-2015087839

PATIENT
  Age: 71 Year
  Sex: Female

DRUGS (20)
  1. ADVAGRAF [Concomitant]
     Active Substance: TACROLIMUS
     Dosage: 5.5 MG, 1X/DAY
     Route: 048
     Dates: start: 201403
  2. TAMIFLU [Concomitant]
     Active Substance: OSELTAMIVIR PHOSPHATE
     Dosage: 150 MG (75 MG X2), DAILY
     Route: 048
     Dates: start: 20150218
  3. BRICANYL [Concomitant]
     Active Substance: TERBUTALINE SULFATE
     Dosage: 1 DF, 4X/DAY
     Route: 049
     Dates: start: 20150217
  4. ATROVENT [Concomitant]
     Active Substance: IPRATROPIUM BROMIDE
     Dosage: 1 DF, 4X/DAY
     Route: 049
     Dates: start: 20150217
  5. PANPHARMA [Concomitant]
     Dosage: 1 G, 1X/DAY
     Route: 042
     Dates: start: 20150217
  6. FEMARA [Concomitant]
     Active Substance: LETROZOLE
     Dosage: 2.5 MG, DAILY
  7. LYRICA [Suspect]
     Active Substance: PREGABALIN
     Dosage: 50 MG, 2X/DAY
     Route: 048
     Dates: start: 20150107, end: 20150220
  8. ROVAMYCINE [Concomitant]
     Active Substance: SPIRAMYCIN
     Dosage: 3 ?CI, 3X/DAY
     Dates: start: 20150217
  9. MOPRAL [Concomitant]
     Active Substance: OMEPRAZOLE SODIUM
     Dosage: 20 MG, DAILY
  10. LANTUS [Concomitant]
     Active Substance: INSULIN GLARGINE
  11. AMLOR [Concomitant]
     Active Substance: AMLODIPINE BESYLATE
     Dosage: 10 MG, DAILY
  12. LASILIX [Concomitant]
     Active Substance: FUROSEMIDE
     Dosage: 40 MG, DAILY
  13. SEROPLEX [Concomitant]
     Active Substance: ESCITALOPRAM OXALATE
     Dosage: 10 MG, DAILY
  14. NOVORAPID [Concomitant]
     Active Substance: INSULIN ASPART
  15. LEVOTHYROX [Concomitant]
     Active Substance: LEVOTHYROXINE
     Dosage: 175 ?G, DAILY
  16. INEGY [Concomitant]
     Active Substance: EZETIMIBE\SIMVASTATIN
     Dosage: UNK
     Dates: start: 201405
  17. EUPRESSYL [Concomitant]
     Active Substance: URAPIDIL
     Dosage: 60 MG, 2X/DAY
  18. ARANESP [Concomitant]
     Active Substance: DARBEPOETIN ALFA
     Dosage: 50 ?G, 2X/WEEK
  19. ROCEPHINE [Concomitant]
     Active Substance: CEFTRIAXONE SODIUM
     Dosage: 2 G, DAILY
     Dates: start: 20150217
  20. CELLCEPT [Concomitant]
     Active Substance: MYCOPHENOLATE MOFETIL\MYCOPHENOLATE MOFETIL HYDROCHLORIDE
     Dosage: 500 MG, 2X/DAY
     Route: 048
     Dates: start: 201403

REACTIONS (10)
  - Productive cough [Recovered/Resolved]
  - Leukopenia [Unknown]
  - Pyrexia [Unknown]
  - Rales [Unknown]
  - Influenza [Unknown]
  - Confusional state [Unknown]
  - Renal failure [Unknown]
  - Neutropenia [Recovered/Resolved]
  - Thrombocytopenia [Recovered/Resolved]
  - Anaemia [Not Recovered/Not Resolved]

NARRATIVE: CASE EVENT DATE: 20150217
